FAERS Safety Report 9460254 (Version 1)
Quarter: 2013Q3

REPORT INFORMATION
  Report Type: Spontaneous
  Country: GB (occurrence: GB)
  Receive Date: 20130815
  Receipt Date: 20130815
  Transmission Date: 20140515
  Serious: Yes (Other)
  Sender: FDA-Public Use
  Company Number: GB-WATSON-2013-14500

PATIENT
  Age: 26 Year
  Sex: Female

DRUGS (1)
  1. SERTRALINE HYDROCHLORIDE (UNKNOWN) [Suspect]
     Indication: ANXIETY
     Dosage: 30 MG, UNK
     Route: 048
     Dates: start: 20130505

REACTIONS (6)
  - Weight increased [Unknown]
  - Sexual dysfunction [Unknown]
  - Pollakiuria [Unknown]
  - Acne [Unknown]
  - Anxiety [Unknown]
  - Paranoia [Unknown]
